FAERS Safety Report 12708124 (Version 1)
Quarter: 2016Q3

REPORT INFORMATION
  Report Type: Spontaneous
  Country: US (occurrence: US)
  Receive Date: 20160901
  Receipt Date: 20160901
  Transmission Date: 20161109
  Serious: Yes (Hospitalization, Other)
  Sender: FDA-Public Use
  Company Number: US-AMGEN-USASP2016028475

PATIENT
  Age: 61 Year
  Sex: Female

DRUGS (5)
  1. ABT 199 [Concomitant]
     Indication: CHRONIC LYMPHOCYTIC LEUKAEMIA
     Dosage: UNK
     Dates: start: 2016
  2. WELLBUTRIN [Concomitant]
     Active Substance: BUPROPION HYDROCHLORIDE
     Dosage: UNK
  3. NEUPOGEN [Suspect]
     Active Substance: FILGRASTIM
     Indication: CHRONIC LYMPHOCYTIC LEUKAEMIA
     Dosage: 480 MCG/0.8 ML, EVERY OTHER WEEK
     Route: 065
  4. NEUPOGEN [Suspect]
     Active Substance: FILGRASTIM
     Dosage: 300 MUG, FIVE DAYS A WEEK AND SOMETIMES TWICE WEEKLY
     Route: 065
     Dates: start: 2015
  5. NEUPOGEN [Suspect]
     Active Substance: FILGRASTIM
     Dosage: 480 MUG, EVERY WEEK OR EVERY OTHER WEEK
     Route: 065
     Dates: start: 201605

REACTIONS (11)
  - Bone pain [Unknown]
  - Influenza like illness [Unknown]
  - Fatigue [Not Recovered/Not Resolved]
  - Arthralgia [Unknown]
  - Headache [Not Recovered/Not Resolved]
  - Septic shock [Unknown]
  - Arthropathy [Unknown]
  - Nausea [Not Recovered/Not Resolved]
  - Pneumonitis [Unknown]
  - Neutrophil count decreased [Unknown]
  - Incorrect drug administration duration [Unknown]

NARRATIVE: CASE EVENT DATE: 2015
